FAERS Safety Report 20665216 (Version 3)
Quarter: 2022Q2

REPORT INFORMATION
  Report Type: Report from Study
  Country: KR (occurrence: KR)
  Receive Date: 20220401
  Receipt Date: 20220419
  Transmission Date: 20220721
  Serious: Yes (Hospitalization)
  Sender: FDA-Public Use
  Company Number: KR-ONO-2022KR008070

PATIENT
  Age: 53 Year
  Sex: Male
  Weight: 53.4 kg

DRUGS (2)
  1. OXALIPLATIN [Suspect]
     Active Substance: OXALIPLATIN
     Indication: Gastric cancer
     Dosage: 208 MG/M2
     Route: 065
     Dates: start: 20220315
  2. TS-1 [Suspect]
     Active Substance: GIMERACIL\OTERACIL\TEGAFUR
     Indication: Gastric cancer
     Route: 065
     Dates: start: 20220317, end: 20220320

REACTIONS (1)
  - Internal hernia [Recovered/Resolved]

NARRATIVE: CASE EVENT DATE: 20220320
